FAERS Safety Report 7370778-6 (Version None)
Quarter: 2011Q1

REPORT INFORMATION
  Report Type: 
  Country: None (occurrence: None)
  Receive Date: 20110324
  Receipt Date: 20110315
  Transmission Date: 20110831
  Serious: Yes (Hospitalization, Other)
  Sender: FDA-Public Use
  Company Number: CO-AMGEN-COLCT2011010669

PATIENT
  Age: 74 Year
  Sex: Male

DRUGS (4)
  1. AZATHIOPRINE [Concomitant]
     Indication: RHEUMATOID ARTHRITIS
     Dosage: 100 MG, 1X/DAY
     Dates: start: 20100128
  2. CHLOROQUINE [Concomitant]
     Indication: RHEUMATOID ARTHRITIS
     Dosage: 150 MG, 1X/DAY
     Dates: start: 20090428
  3. PREDNISONE [Concomitant]
     Indication: RHEUMATOID ARTHRITIS
     Dosage: 15 MG, 1X/DAY
     Dates: start: 20090408
  4. ETANERCEPT [Suspect]
     Indication: RHEUMATOID ARTHRITIS
     Dosage: 50 MG, WEEKLY
     Route: 058
     Dates: start: 20101201, end: 20110101

REACTIONS (2)
  - SKIN ULCER [None]
  - BURSITIS INFECTIVE [None]
